FAERS Safety Report 6028604-3 (Version None)
Quarter: 2008Q4

REPORT INFORMATION
  Report Type: 
  Country: None (occurrence: None)
  Receive Date: 20081222
  Receipt Date: 20081029
  Transmission Date: 20090506
  Serious: No
  Sender: FDA-Public Use
  Company Number: US-WYE-H06628108

PATIENT
  Age: 51 Year
  Sex: Female
  Weight: 54.48 kg

DRUGS (7)
  1. PRISTIQ [Suspect]
     Indication: DEPRESSION
     Dosage: 50 MG 1X PER 1 DAY, ORAL
     Route: 048
  2. PROVIGIL [Concomitant]
  3. CLORAZEPATE DIPOTASSIUM [Concomitant]
  4. ESTRATEST [Concomitant]
  5. VITAMIN B12 [Concomitant]
  6. VITAMINE C (ASCORBIC ACID) [Concomitant]
  7. LOVAZA [Concomitant]

REACTIONS (9)
  - CHILLS [None]
  - CONDITION AGGRAVATED [None]
  - CONSTIPATION [None]
  - DISTURBANCE IN ATTENTION [None]
  - HOT FLUSH [None]
  - HYPERHIDROSIS [None]
  - MEMORY IMPAIRMENT [None]
  - PARAESTHESIA [None]
  - WEIGHT INCREASED [None]
